FAERS Safety Report 19478021 (Version 5)
Quarter: 2024Q3

REPORT INFORMATION
  Report Type: Spontaneous
  Country: US (occurrence: US)
  Receive Date: 20210630
  Receipt Date: 20240904
  Transmission Date: 20241016
  Serious: Yes (Other)
  Sender: PFIZER
  Company Number: US-PFIZER INC-2021746364

PATIENT
  Age: 57 Year
  Sex: Male

DRUGS (3)
  1. TIKOSYN [Suspect]
     Active Substance: DOFETILIDE
     Indication: Cardiac disorder
     Dosage: 250 UG, 2X/DAY (1 CAP(S) 2 TIMES A DAY)
     Route: 048
  2. TIKOSYN [Suspect]
     Active Substance: DOFETILIDE
     Indication: Atrial fibrillation
     Dosage: 250 UG, 2X/DAY (1 CAP(S) 2 TIMES A DAY)
     Route: 048
  3. ELIQUIS [Concomitant]
     Active Substance: APIXABAN
     Indication: Cerebrovascular accident prophylaxis
     Dosage: 1 DF, 2X/DAY
     Route: 048

REACTIONS (3)
  - Blindness unilateral [Unknown]
  - Glaucoma [Unknown]
  - Wrong strength [Unknown]

NARRATIVE: CASE EVENT DATE: 20130101
